FAERS Safety Report 18104991 (Version 1)
Quarter: 2020Q3

REPORT INFORMATION
  Report Type: Spontaneous
  Country: FR (occurrence: FR)
  Receive Date: 20200804
  Receipt Date: 20200804
  Transmission Date: 20201103
  Serious: Yes (Hospitalization, Other)
  Sender: FDA-Public Use
  Company Number: FR-AUROBINDO-AUR-APL-2020-037188

PATIENT
  Age: 21 Year
  Sex: Female

DRUGS (2)
  1. MINERVA [Concomitant]
     Active Substance: CYPROTERONE ACETATE\ETHINYL ESTRADIOL
     Indication: CONTRACEPTION
     Dosage: 21 UNK, EVERY MONTH
     Route: 048
     Dates: start: 2017
  2. NAPROXEN 550MG [Suspect]
     Active Substance: NAPROXEN
     Indication: MIGRAINE
     Dosage: UNK (8?10 TIMES PER MONTH)
     Route: 048
     Dates: start: 2014

REACTIONS (12)
  - Nervous system disorder [Recovered/Resolved]
  - Vomiting [Recovered/Resolved]
  - Nausea [Recovered/Resolved]
  - Paraesthesia [Recovered/Resolved]
  - Hypoaesthesia [Recovered/Resolved]
  - Migraine with aura [Recovered/Resolved]
  - Cerebrovascular accident [Recovered/Resolved]
  - Sensory loss [Recovered/Resolved]
  - Somnolence [Recovered/Resolved]
  - Speech disorder [Recovered/Resolved]
  - Dehydration [Recovered/Resolved]
  - Drug ineffective [Unknown]

NARRATIVE: CASE EVENT DATE: 201911
